FAERS Safety Report 8624516-7 (Version None)
Quarter: 2012Q3

REPORT INFORMATION
  Report Type: 
  Country: None (occurrence: None)
  Receive Date: 20120827
  Receipt Date: 20120820
  Transmission Date: 20120928
  Serious: Yes (Other)
  Sender: FDA-Public Use
  Company Number: US-JNJFOC-20120808715

PATIENT
  Age: 45 Year
  Sex: Male
  Weight: 99.79 kg

DRUGS (3)
  1. MINOXIDIL [Suspect]
     Indication: ALOPECIA
     Dosage: HALF CAPFUL
     Route: 061
     Dates: start: 20110801
  2. MINOXIDIL [Suspect]
     Route: 061
  3. UNKNOWN MEDICATION [Concomitant]
     Route: 065

REACTIONS (1)
  - CHEMICAL INJURY [None]
